FAERS Safety Report 14176104 (Version 13)
Quarter: 2020Q1

REPORT INFORMATION
  Report Type: Report from Study
  Country: US (occurrence: US)
  Receive Date: 20171109
  Receipt Date: 20200219
  Transmission Date: 20200409
  Serious: Yes (Death, Hospitalization)
  Sender: FDA-Public Use
  Company Number: US-ACTELION-A-US2016-142015

PATIENT
  Age: 72 Year
  Sex: Female
  Weight: 55.96 kg

DRUGS (22)
  1. UPTRAVI [Suspect]
     Active Substance: SELEXIPAG
     Dosage: 200 MCG, BID
     Route: 048
     Dates: start: 20160821
  2. OMEPRAZOLE. [Concomitant]
     Active Substance: OMEPRAZOLE
     Dosage: UNK
     Dates: start: 2012
  3. POTASSIUM CHLORIDE. [Concomitant]
     Active Substance: POTASSIUM CHLORIDE
     Dosage: UNK
     Dates: start: 2012
  4. SILDENAFIL. [Concomitant]
     Active Substance: SILDENAFIL
     Dosage: UNK
     Dates: start: 2012
  5. SPIRONOLACTONE. [Concomitant]
     Active Substance: SPIRONOLACTONE
     Dosage: UNK
     Dates: start: 2013
  6. CITALOPRAM [Concomitant]
     Active Substance: CITALOPRAM HYDROBROMIDE
  7. OPSUMIT [Suspect]
     Active Substance: MACITENTAN
     Indication: PULMONARY ARTERIAL HYPERTENSION
     Dosage: 10 MG, QD
     Route: 048
     Dates: start: 20140915
  8. COUMADIN [Concomitant]
     Active Substance: WARFARIN SODIUM
     Dosage: UNK
     Dates: start: 2012
  9. SITAGLIPTIN [Concomitant]
     Active Substance: SITAGLIPTIN
     Dosage: UNK
     Dates: start: 2012
  10. INVOKANA [Concomitant]
     Active Substance: CANAGLIFLOZIN
     Dosage: UNK
     Dates: start: 2012
  11. LOPERAMIDE [Concomitant]
     Active Substance: LOPERAMIDE
  12. REVATIO [Concomitant]
     Active Substance: SILDENAFIL CITRATE
  13. ALLOPURINOL. [Concomitant]
     Active Substance: ALLOPURINOL
     Dosage: UNK
     Dates: start: 2014
  14. METFORMIN [Concomitant]
     Active Substance: METFORMIN HYDROCHLORIDE
     Dosage: UNK
     Dates: start: 2012
  15. GLYBURIDE. [Concomitant]
     Active Substance: GLYBURIDE
     Dosage: UNK
     Dates: start: 2012
  16. CARVEDILOL. [Concomitant]
     Active Substance: CARVEDILOL
     Dosage: UNK
     Dates: start: 2012
  17. OXYGEN. [Concomitant]
     Active Substance: OXYGEN
     Dosage: UNK
     Dates: start: 2012
  18. UPTRAVI [Suspect]
     Active Substance: SELEXIPAG
     Indication: PULMONARY ARTERIAL HYPERTENSION
     Dosage: 200 MCG, QD
     Route: 048
     Dates: start: 20160914
  19. TORSEMIDE. [Concomitant]
     Active Substance: TORSEMIDE
     Dosage: UNK
     Dates: start: 2013
  20. SIMVASTATIN. [Concomitant]
     Active Substance: SIMVASTATIN
     Dosage: UNK
     Dates: start: 2012
  21. OXYCODONE AND ACETAMINOPHEN [Concomitant]
     Active Substance: ACETAMINOPHEN\OXYCODONE HYDROCHLORIDE
     Dosage: UNK
     Dates: start: 2017
  22. TEMAZEPAM. [Concomitant]
     Active Substance: TEMAZEPAM

REACTIONS (28)
  - Cardiac failure congestive [Fatal]
  - Weight increased [Fatal]
  - Cardiac ablation [Unknown]
  - Lung infiltration [Recovered/Resolved]
  - Accidental overdose [Recovered/Resolved with Sequelae]
  - Oedema peripheral [Fatal]
  - Arrhythmia supraventricular [Recovered/Resolved]
  - Diarrhoea [Recovering/Resolving]
  - Acute kidney injury [Unknown]
  - Device related infection [Unknown]
  - Renal disorder [Unknown]
  - Pulmonary oedema [Unknown]
  - Toxicity to various agents [Recovered/Resolved with Sequelae]
  - Dialysis [Unknown]
  - Renal failure [Unknown]
  - Pulmonary hypertension [Fatal]
  - Hospitalisation [Unknown]
  - Dyspnoea [Fatal]
  - Oxygen saturation decreased [Fatal]
  - Vomiting [Recovered/Resolved with Sequelae]
  - Nausea [Recovered/Resolved with Sequelae]
  - Fluid retention [Unknown]
  - Urinary tract infection [Recovered/Resolved]
  - Oxygen consumption increased [Fatal]
  - Lung cancer metastatic [Fatal]
  - Pyrexia [Recovered/Resolved]
  - Dehydration [Recovered/Resolved with Sequelae]
  - Palpitations [Unknown]

NARRATIVE: CASE EVENT DATE: 20170908
